FAERS Safety Report 7691773-3 (Version None)
Quarter: 2011Q3

REPORT INFORMATION
  Report Type: 
  Country: None (occurrence: None)
  Receive Date: 20110818
  Receipt Date: 20110808
  Transmission Date: 20111222
  Serious: Yes (Hospitalization)
  Sender: FDA-Public Use
  Company Number: IT-TEVA-296912ISR

PATIENT
  Sex: Male

DRUGS (21)
  1. FLUOROURACIL [Suspect]
     Route: 040
     Dates: start: 20090414
  2. LEUCOVORIN CALCIUM [Suspect]
     Dates: start: 20090427
  3. LEUCOVORIN CALCIUM [Suspect]
     Dates: start: 20090608
  4. FLUOROURACIL [Suspect]
     Dates: start: 20090331
  5. FLUOROURACIL [Suspect]
     Route: 040
     Dates: start: 20090427
  6. FLUOROURACIL [Suspect]
     Route: 042
     Dates: start: 20090511
  7. FLUOROURACIL [Suspect]
     Route: 040
     Dates: start: 20090608
  8. LEUCOVORIN CALCIUM [Suspect]
     Dates: start: 20090331
  9. FLUOROURACIL [Suspect]
     Route: 042
     Dates: start: 20090331
  10. FLUOROURACIL [Suspect]
     Route: 042
     Dates: start: 20090525
  11. FLUOROURACIL [Suspect]
     Route: 042
     Dates: start: 20090427
  12. FLUOROURACIL [Suspect]
     Route: 040
     Dates: start: 20090525
  13. FLUOROURACIL [Suspect]
     Route: 040
     Dates: start: 20090511
  14. FLUOROURACIL [Suspect]
     Route: 042
     Dates: start: 20090608
  15. LEUCOVORIN CALCIUM [Suspect]
     Dates: start: 20090414
  16. LEUCOVORIN CALCIUM [Suspect]
     Dates: start: 20090525
  17. FLUOROURACIL [Suspect]
     Route: 042
     Dates: start: 20090414
  18. OMEPRAZOLE [Concomitant]
     Dates: start: 20090619, end: 20090619
  19. ENSURE [Concomitant]
     Dates: start: 20090619, end: 20090619
  20. LEUCOVORIN CALCIUM [Suspect]
     Dates: start: 20090511
  21. PERIDON [Concomitant]
     Dates: start: 20090619, end: 20090619

REACTIONS (1)
  - GASTROENTERITIS [None]
